FAERS Safety Report 5799105-2 (Version None)
Quarter: 2008Q3

REPORT INFORMATION
  Report Type: 
  Country: None (occurrence: None)
  Receive Date: 20080702
  Receipt Date: 20080624
  Transmission Date: 20090109
  Serious: Yes (Hospitalization)
  Sender: FDA-Public Use
  Company Number: AT-BOEHRINGER INGELHEIM GMBH, GERMANY-2008-BE-00036BE

PATIENT
  Sex: Female

DRUGS (7)
  1. SIFROL [Suspect]
     Indication: RESTLESS LEGS SYNDROME
     Dosage: 0,088 MG 0/0/0/1;  THEN 0,18 MG 0/0/0/1
     Dates: start: 20070430
  2. CONCOR COR [Concomitant]
     Dosage: 1/0/1
  3. LANSOBENE [Concomitant]
  4. ISMN [Concomitant]
     Dosage: 1/0/1
  5. VASONIT RET. [Concomitant]
     Dosage: 1/0/1
  6. TRAMADOL HCL [Concomitant]
     Dosage: 1/0/1
  7. DICLOVIT [Concomitant]

REACTIONS (3)
  - CONFUSIONAL STATE [None]
  - DEPRESSION [None]
  - SUICIDAL IDEATION [None]
